FAERS Safety Report 23951999 (Version 1)
Quarter: 2024Q2

REPORT INFORMATION
  Report Type: Spontaneous
  Country: US (occurrence: US)
  Receive Date: 20240607
  Receipt Date: 20240607
  Transmission Date: 20240716
  Serious: No
  Sender: FDA-Public Use
  Company Number: US-KYOWAKIRIN-2024KK013549

PATIENT

DRUGS (1)
  1. CRYSVITA [Suspect]
     Active Substance: BUROSUMAB-TWZA
     Indication: Hereditary hypophosphataemic rickets
     Dosage: 23.4 MG, 1X/2 WEEKS (0.78 ML)
     Route: 058

REACTIONS (3)
  - Gastroenteritis viral [Unknown]
  - Weight decreased [Unknown]
  - Product use issue [Unknown]
